FAERS Safety Report 5042956-2 (Version None)
Quarter: 2006Q2

REPORT INFORMATION
  Report Type: 
  Country: None (occurrence: None)
  Receive Date: 20060627
  Receipt Date: 20060614
  Transmission Date: 20061013
  Serious: Yes (Life-Threatening, Hospitalization)
  Sender: FDA-Public Use
  Company Number: 2006075252

PATIENT
  Age: 23 Year
  Sex: Male

DRUGS (1)
  1. AZITHROMYCIN [Suspect]
     Dosage: ORAL
     Route: 048

REACTIONS (3)
  - BLOOD PRESSURE DECREASED [None]
  - PULMONARY ALVEOLAR HAEMORRHAGE [None]
  - PULMONARY HYPERTENSION [None]
